APPROVED DRUG PRODUCT: CHLORDIAZEPOXIDE AND AMITRIPTYLINE HYDROCHLORIDE
Active Ingredient: AMITRIPTYLINE HYDROCHLORIDE; CHLORDIAZEPOXIDE
Strength: EQ 12.5MG BASE;5MG
Dosage Form/Route: TABLET;ORAL
Application: A071297 | Product #002
Applicant: MYLAN PHARMACEUTICALS INC
Approved: Dec 10, 1986 | RLD: No | RS: No | Type: RX